APPROVED DRUG PRODUCT: PRAMIPEXOLE DIHYDROCHLORIDE
Active Ingredient: PRAMIPEXOLE DIHYDROCHLORIDE
Strength: 0.75MG
Dosage Form/Route: TABLET;ORAL
Application: A091683 | Product #004
Applicant: SUN PHARMACEUTICAL INDUSTRIES INC
Approved: Mar 27, 2013 | RLD: No | RS: No | Type: DISCN